FAERS Safety Report 5248243-1 (Version None)
Quarter: 2007Q1

REPORT INFORMATION
  Report Type: 
  Country: None (occurrence: None)
  Receive Date: 20070227
  Receipt Date: 20060912
  Transmission Date: 20070707
  Serious: Yes (Other)
  Sender: FDA-Public Use
  Company Number: US-BRISTOL-MYERS SQUIBB COMPANY-13506498

PATIENT
  Age: 58 Year
  Sex: Male
  Weight: 107 kg

DRUGS (3)
  1. GLUCOPHAGE [Suspect]
     Dosage: CONSUMER RECOMMENDED DOSAGE WAS 1000MG BID NOT 2000MG BID.
     Dates: start: 20060905, end: 20060909
  2. ZOCOR [Concomitant]
  3. ACTOS [Concomitant]

REACTIONS (4)
  - ANOREXIA [None]
  - NAUSEA [None]
  - OVERDOSE [None]
  - STOMACH DISCOMFORT [None]
